FAERS Safety Report 19459626 (Version 1)
Quarter: 2021Q2

REPORT INFORMATION
  Report Type: Other
  Country: GB (occurrence: GB)
  Receive Date: 20210624
  Receipt Date: 20210624
  Transmission Date: 20210717
  Serious: No
  Sender: FDA-Public Use
  Company Number: GB-LUPIN PHARMACEUTICALS INC.-2021-10098

PATIENT
  Age: 29 Year
  Sex: Male
  Weight: 105 kg

DRUGS (5)
  1. CODEINE PHOSPHATE [Concomitant]
     Active Substance: CODEINE PHOSPHATE
     Indication: PRODUCT USED FOR UNKNOWN INDICATION
     Dosage: 4 DOSAGE FORM, QD, TAKE ONE 4 TIMES/DAY PRN
     Route: 065
     Dates: start: 20210414, end: 20210512
  2. LOPERAMIDE [Concomitant]
     Active Substance: LOPERAMIDE
     Indication: PRODUCT USED FOR UNKNOWN INDICATION
     Dosage: 2 MILLIGRAM, PRN, (2MG AFTER EACH LOOSE STOOL FOR UP TO FIVE DAYS)
     Route: 065
     Dates: start: 20210414, end: 20210512
  3. XENIDATE XL [Concomitant]
     Active Substance: METHYLPHENIDATE HYDROCHLORIDE
     Indication: PRODUCT USED FOR UNKNOWN INDICATION
     Dosage: 1 DOSAGE FORM, QD, TAKE ONE EACH MORNING
     Route: 065
     Dates: start: 20190827, end: 20210412
  4. SERTRALINE [Suspect]
     Active Substance: SERTRALINE HYDROCHLORIDE
     Indication: PRODUCT USED FOR UNKNOWN INDICATION
     Dosage: 100 MILLIGRAM, QD
     Route: 065
     Dates: start: 20210412
  5. RISPERIDONE. [Concomitant]
     Active Substance: RISPERIDONE
     Indication: PRODUCT USED FOR UNKNOWN INDICATION
     Dosage: 2 DOSAGE FORM, QD, 2 DAILY
     Route: 065
     Dates: start: 20210203, end: 20210419

REACTIONS (2)
  - Micturition disorder [Unknown]
  - Enuresis [Unknown]

NARRATIVE: CASE EVENT DATE: 20210608
